FAERS Safety Report 6441796-7 (Version None)
Quarter: 2009Q4

REPORT INFORMATION
  Report Type: 
  Country: None (occurrence: None)
  Receive Date: 20091113
  Receipt Date: 20091113
  Transmission Date: 20100525
  Serious: Yes (Death)
  Sender: FDA-Public Use
  Company Number: None

PATIENT
  Age: 5 Year
  Sex: Female
  Weight: 17.6 kg

DRUGS (1)
  1. SEVOFLURANE [Suspect]
     Indication: GENERAL ANAESTHESIA
     Dosage: SEVOFLURANE INHALATION  FROM 07:45-10:45
     Route: 055
     Dates: start: 20091103

REACTIONS (2)
  - CARDIO-RESPIRATORY ARREST [None]
  - HYPERTHERMIA MALIGNANT [None]
